FAERS Safety Report 17102915 (Version 1)
Quarter: 2019Q4

REPORT INFORMATION
  Report Type: Spontaneous
  Country: US (occurrence: US)
  Receive Date: 20191106
  Receipt Date: 20191106
  Transmission Date: 20200122
  Serious: Yes (Death, Hospitalization)
  Sender: FDA-Public Use
  Company Number: None

PATIENT
  Age: 54 Year
  Sex: Male
  Weight: 90.4 kg

DRUGS (5)
  1. CYTARABINE. [Suspect]
     Active Substance: CYTARABINE
     Dates: end: 20190906
  2. MERCAPTOPURINE. [Suspect]
     Active Substance: MERCAPTOPURINE
     Dates: end: 20190909
  3. METHOTREXATE. [Suspect]
     Active Substance: METHOTREXATE
     Dates: end: 20190910
  4. ONCASPAR [Suspect]
     Active Substance: PEGASPARGASE
     Dates: end: 20190910
  5. CYCLOPHOSPHAMIDE. [Suspect]
     Active Substance: CYCLOPHOSPHAMIDE
     Dates: end: 20190827

REACTIONS (9)
  - Syncope [None]
  - Mouth haemorrhage [None]
  - Body temperature increased [None]
  - Haemorrhage [None]
  - Pulseless electrical activity [None]
  - Neutropenia [None]
  - Fall [None]
  - Vomiting [None]
  - Unresponsive to stimuli [None]

NARRATIVE: CASE EVENT DATE: 20190914
